FAERS Safety Report 6222665-4 (Version None)
Quarter: 2009Q2

REPORT INFORMATION
  Report Type: 
  Country: None (occurrence: None)
  Receive Date: 20090611
  Receipt Date: 20090528
  Transmission Date: 20091009
  Serious: Yes (Death, Hospitalization, Other)
  Sender: FDA-Public Use
  Company Number: NO-ELI_LILLY_AND_COMPANY-NO200905005553

PATIENT
  Sex: Female

DRUGS (11)
  1. OLANZAPINE [Suspect]
     Dosage: 2.5 MG, DAILY (1/D)
     Route: 048
     Dates: start: 20080131, end: 20080205
  2. CLOZAPINE [Concomitant]
  3. IBUMETIN [Concomitant]
     Indication: PAIN IN EXTREMITY
     Dosage: 400 MG, AS NEEDED
     Route: 048
     Dates: start: 20080114
  4. ALBYL-E [Concomitant]
     Dosage: 75 MG, DAILY (1/D)
     Route: 048
     Dates: start: 20070704
  5. LEVOTHYROXINE SODIUM [Concomitant]
     Dosage: 100 UG, 5/W
     Route: 048
  6. FURIX [Concomitant]
     Indication: DIURETIC THERAPY
     Dosage: 40 MG, DAILY (1/D)
     Route: 048
     Dates: start: 20080114
  7. LAKTULOSE [Concomitant]
     Dosage: 30 ML, AS NEEDED
     Route: 048
     Dates: start: 20071114
  8. LACTULOSE [Concomitant]
     Dosage: 0.4 MG, DAILY (1/D)
     Route: 048
     Dates: start: 20070831
  9. PARALGIN FORTE [Concomitant]
     Indication: PAIN
     Dosage: 1 D/F, AS NEEDED
     Route: 048
     Dates: start: 20080120
  10. ACETAMINOPHEN [Concomitant]
     Indication: PAIN IN EXTREMITY
     Dosage: 500 MG, AS NEEDED
     Route: 048
     Dates: start: 20080114
  11. FOLIC ACID [Concomitant]

REACTIONS (11)
  - ACUTE MYOCARDIAL INFARCTION [None]
  - ATRIAL FIBRILLATION [None]
  - BODY TEMPERATURE INCREASED [None]
  - DYSARTHRIA [None]
  - INCONTINENCE [None]
  - INFECTION [None]
  - MUSCLE RIGIDITY [None]
  - NEUROLEPTIC MALIGNANT SYNDROME [None]
  - ORGAN FAILURE [None]
  - SOMNOLENCE [None]
  - TACHYCARDIA [None]
